FAERS Safety Report 19030329 (Version 1)
Quarter: 2021Q1

REPORT INFORMATION
  Report Type: Spontaneous
  Country: US (occurrence: US)
  Receive Date: 20210318
  Receipt Date: 20210318
  Transmission Date: 20210420
  Serious: Yes (Hospitalization)
  Sender: FDA-Public Use
  Company Number: None

PATIENT
  Age: 40 Year
  Sex: Male

DRUGS (1)
  1. OCTREOTIDE 50MCG/ML SYR MYLAN INSTITUTIONAL [Suspect]
     Active Substance: OCTREOTIDE
     Indication: PHOSPHORUS METABOLISM DISORDER
     Dosage: ?          OTHER DOSE:1 SYR;?
     Route: 058
     Dates: start: 20200311

REACTIONS (2)
  - Abdominal discomfort [None]
  - Pain [None]

NARRATIVE: CASE EVENT DATE: 202101
